FAERS Safety Report 20445987 (Version 1)
Quarter: 2022Q1

REPORT INFORMATION
  Report Type: Spontaneous
  Country: US (occurrence: US)
  Receive Date: 20220208
  Receipt Date: 20220208
  Transmission Date: 20220423
  Serious: No
  Sender: FDA-Public Use
  Company Number: US-SA-SAC20220202000164

PATIENT
  Sex: Male

DRUGS (1)
  1. DUPIXENT [Suspect]
     Active Substance: DUPILUMAB
     Indication: Sinus polyp degeneration
     Route: 058
     Dates: start: 20211209

REACTIONS (5)
  - Eye swelling [Unknown]
  - Ocular hyperaemia [Unknown]
  - Vision blurred [Unknown]
  - Condition aggravated [Unknown]
  - Product use in unapproved indication [Unknown]
